FAERS Safety Report 8180174-X (Version None)
Quarter: 2012Q1

REPORT INFORMATION
  Report Type: 
  Country: None (occurrence: None)
  Receive Date: 20120302
  Receipt Date: 20120224
  Transmission Date: 20120608
  Serious: Yes (Other)
  Sender: FDA-Public Use
  Company Number: HU-UCBSA-052284

PATIENT
  Age: 74 Year
  Sex: Female

DRUGS (4)
  1. VITAMIN D [Concomitant]
     Dosage: UNKNOWN DOSE
     Route: 048
  2. ARAVA [Concomitant]
     Indication: RHEUMATOID ARTHRITIS
     Route: 048
  3. CIMZIA [Suspect]
     Indication: RHEUMATOID ARTHRITIS
     Route: 058
     Dates: start: 20101027, end: 20120217
  4. MEDROL [Concomitant]
     Indication: RHEUMATOID ARTHRITIS
     Route: 048

REACTIONS (1)
  - NON-HODGKIN'S LYMPHOMA [None]
